FAERS Safety Report 6073423-5 (Version None)
Quarter: 2009Q1

REPORT INFORMATION
  Report Type: 
  Country: None (occurrence: None)
  Receive Date: 20090211
  Receipt Date: 20090205
  Transmission Date: 20090719
  Serious: Yes (Hospitalization)
  Sender: FDA-Public Use
  Company Number: FR-ASTRAZENECA-2009CG00332

PATIENT
  Age: 79 Year
  Sex: Male

DRUGS (3)
  1. CRESTOR [Suspect]
     Route: 048
     Dates: end: 20081022
  2. ZYVOXID [Suspect]
     Route: 042
     Dates: start: 20081011, end: 20081021
  3. INIPOMP [Suspect]
     Route: 048
     Dates: start: 20081013, end: 20081021

REACTIONS (2)
  - ANAEMIA [None]
  - THROMBOCYTOPENIA [None]
